FAERS Safety Report 13417535 (Version 4)
Quarter: 2017Q2

REPORT INFORMATION
  Report Type: Spontaneous
  Country: US (occurrence: US)
  Receive Date: 20170406
  Receipt Date: 20170606
  Transmission Date: 20170830
  Serious: No
  Sender: FDA-Public Use
  Company Number: US-INCYTE CORPORATION-2017IN002509

PATIENT
  Sex: Male

DRUGS (1)
  1. JAKAFI [Suspect]
     Active Substance: RUXOLITINIB
     Indication: POLYCYTHAEMIA VERA
     Dosage: 20 MG, DAILY
     Route: 048
     Dates: start: 20151209

REACTIONS (3)
  - Flatulence [Recovered/Resolved]
  - Coagulopathy [Unknown]
  - Gastric disorder [Recovered/Resolved]
